FAERS Safety Report 6247090-1 (Version None)
Quarter: 2009Q2

REPORT INFORMATION
  Report Type: 
  Country: None (occurrence: None)
  Receive Date: 20090624
  Receipt Date: 20090624
  Transmission Date: 20091009
  Serious: Yes (Hospitalization)
  Sender: FDA-Public Use
  Company Number: None

PATIENT
  Age: 54 Year
  Sex: Female

DRUGS (1)
  1. FLAGYL [Suspect]

REACTIONS (3)
  - DIZZINESS [None]
  - PRURITUS GENERALISED [None]
  - SWELLING FACE [None]
